FAERS Safety Report 21764484 (Version 1)
Quarter: 2022Q4

REPORT INFORMATION
  Report Type: Spontaneous
  Country: IN (occurrence: IN)
  Receive Date: 20221222
  Receipt Date: 20221222
  Transmission Date: 20230113
  Serious: Yes (Hospitalization, Other)
  Sender: FDA-Public Use
  Company Number: IN-SUN PHARMACEUTICAL INDUSTRIES LTD-2022R1-369786

PATIENT
  Age: 35 Year
  Sex: Male

DRUGS (2)
  1. GLYCOPYRROLATE [Suspect]
     Active Substance: GLYCOPYRROLATE
     Indication: Product used for unknown indication
     Dosage: 25 VIALS TWO DOSES
     Route: 065
  2. NEOSTIGMINE [Suspect]
     Active Substance: NEOSTIGMINE
     Indication: Product used for unknown indication
     Dosage: 25 VIALS TWO DOSES
     Route: 065

REACTIONS (1)
  - Disease recurrence [Unknown]
